FAERS Safety Report 5223695-1 (Version None)
Quarter: 2007Q1

REPORT INFORMATION
  Report Type: 
  Country: None (occurrence: None)
  Receive Date: 20070126
  Receipt Date: 20070118
  Transmission Date: 20070707
  Serious: Yes (Hospitalization, Other)
  Sender: FDA-Public Use
  Company Number: 430003N07JPN

PATIENT
  Age: 67 Year
  Sex: Female

DRUGS (13)
  1. NOVANTRONE [Suspect]
     Dosage: INTRAVENOUS
     Route: 042
     Dates: start: 20060615, end: 20060619
  2. MYLOTARG [Suspect]
     Dosage: 9 MG/M2, 1 IN 1 DAYS, INTRAVENOUS
     Route: 042
     Dates: start: 20060502, end: 20060502
  3. CYTARABINE [Suspect]
     Dosage: SEE IMAGE
     Route: 042
     Dates: start: 20060511, end: 20060517
  4. CYTARABINE [Suspect]
     Dosage: SEE IMAGE
     Route: 042
     Dates: start: 20060615, end: 20060619
  5. IDARUBICIN HCL [Suspect]
     Dosage: INTRAVENOUS
     Route: 042
     Dates: start: 20060511, end: 20060517
  6. FAMOTIDINE [Concomitant]
  7. LEVOFLOXACIN [Concomitant]
  8. FLUCONAZOLE [Concomitant]
  9. ALLOPURINOL SODIUM [Concomitant]
  10. DIPHENHYDRAMINE HYROCHLORIDE [Concomitant]
  11. PARACETAMOL [Concomitant]
  12. METHYLPREDNISOLONE SODIUM SUCCINATE [Concomitant]
  13. HYDROCORTISONE SODIUM PHOSPHATE [Concomitant]

REACTIONS (10)
  - ALANINE AMINOTRANSFERASE INCREASED [None]
  - ASPARTATE AMINOTRANSFERASE INCREASED [None]
  - BLOOD ALKALINE PHOSPHATASE INCREASED [None]
  - C-REACTIVE PROTEIN INCREASED [None]
  - GAMMA-GLUTAMYLTRANSFERASE INCREASED [None]
  - MONOCYTE COUNT INCREASED [None]
  - NEUTROPENIA [None]
  - PYREXIA [None]
  - TONSILLITIS [None]
  - WHITE BLOOD CELL COUNT DECREASED [None]
